FAERS Safety Report 4407462-4 (Version None)
Quarter: 2004Q3

REPORT INFORMATION
  Report Type: 
  Country: None (occurrence: None)
  Receive Date: 20040721
  Receipt Date: 20040701
  Transmission Date: 20050211
  Serious: Yes (Life-Threatening)
  Sender: FDA-Public Use
  Company Number: J200402834

PATIENT
  Age: 81 Year
  Sex: Male

DRUGS (6)
  1. MYSLEE ZOLPIDEM TABLET 5MG [Suspect]
     Indication: ANXIETY
     Dosage: 5MG PO
     Route: 048
     Dates: start: 20040615, end: 20040615
  2. MYSLEE ZOLPIDEM TABLET 5MG [Suspect]
     Indication: INSOMNIA
     Dosage: 5MG PO
     Route: 048
     Dates: start: 20040615, end: 20040615
  3. SULPERAZON (SULBACTAM CEFOPERAZONE) [Concomitant]
  4. CLARITHROMYCIN [Concomitant]
  5. MUCOSOLVAN (AMBROXOL HYDROCHLORIDE) [Concomitant]
  6. BISOLVON (BROMHEXINE HYDROCHLORIDE) [Concomitant]

REACTIONS (18)
  - BLOOD ALKALINE PHOSPHATASE INCREASED [None]
  - BLOOD BILIRUBIN INCREASED [None]
  - BLOOD CHLORIDE DECREASED [None]
  - BLOOD LACTATE DEHYDROGENASE INCREASED [None]
  - BLOOD PH DECREASED [None]
  - BLOOD POTASSIUM DECREASED [None]
  - BLOOD SODIUM DECREASED [None]
  - BODY TEMPERATURE DECREASED [None]
  - CONDITION AGGRAVATED [None]
  - DEPRESSED LEVEL OF CONSCIOUSNESS [None]
  - HAEMATOCRIT DECREASED [None]
  - HAEMOGLOBIN DECREASED [None]
  - HEART RATE INCREASED [None]
  - HYPERCAPNIA [None]
  - LYMPHOCYTE PERCENTAGE DECREASED [None]
  - NEUTROPHIL PERCENTAGE INCREASED [None]
  - PNEUMONIA [None]
  - RED BLOOD CELL COUNT DECREASED [None]
